FAERS Safety Report 5091927-9 (Version None)
Quarter: 2006Q3

REPORT INFORMATION
  Report Type: 
  Country: None (occurrence: None)
  Receive Date: 20060825
  Receipt Date: 20060811
  Transmission Date: 20061208
  Serious: Yes (Other)
  Sender: FDA-Public Use
  Company Number: JP200603004460

PATIENT
  Age: 69 Year
  Sex: Female
  Weight: 48 kg

DRUGS (3)
  1. RALOXIFENE HCL [Suspect]
     Indication: OSTEOPOROSIS POSTMENOPAUSAL
     Dosage: 60 MG, DAILY (1/D), ORAL
     Route: 048
     Dates: start: 20050218, end: 20050408
  2. ONE-ALPHA (ALFACALCIDOL0 [Concomitant]
  3. ASPARA-CA (ASPARTATE CALCIUM) [Concomitant]

REACTIONS (1)
  - CHEST DISCOMFORT [None]
